FAERS Safety Report 12841886 (Version 2)
Quarter: 2016Q4

REPORT INFORMATION
  Report Type: Report from Study
  Country: AR (occurrence: AR)
  Receive Date: 20161012
  Receipt Date: 20161229
  Transmission Date: 20170207
  Serious: Yes (Hospitalization)
  Sender: FDA-Public Use
  Company Number: AR-B.I. PHARMACEUTICALS,INC./RIDGEFIELD-2016-BI-36618BI

PATIENT
  Age: 77 Year
  Sex: Male
  Weight: 86 kg

DRUGS (6)
  1. ASPIRIN. [Concomitant]
     Active Substance: ASPIRIN
     Indication: CORONARY ARTERY DISEASE
     Dosage: DOSE PER APPLICATION AND DAILY DOSE: 100
     Route: 048
     Dates: start: 201404
  2. BLINDED LINAGLIPTIN [Suspect]
     Active Substance: LINAGLIPTIN
     Indication: TYPE 2 DIABETES MELLITUS
     Route: 048
     Dates: start: 20141107
  3. INSULINE [Concomitant]
     Active Substance: INSULIN NOS
     Indication: TYPE 2 DIABETES MELLITUS
     Dosage: DOSE PER APPLICATION AND DAILY DOSE: 10
     Route: 058
     Dates: start: 201406
  4. LOSARTAN. [Concomitant]
     Active Substance: LOSARTAN
     Indication: HYPERTENSION
     Dosage: DOSE PER APPLICATION AND DAILY DOSE: 50
     Route: 048
     Dates: start: 2013
  5. CILOSTAZOL. [Concomitant]
     Active Substance: CILOSTAZOL
     Indication: PERIPHERAL VASCULAR DISORDER
     Dosage: DOSE PER APPLICATION AND DAILY DOSE: 50
     Route: 048
     Dates: start: 201404
  6. ATORVASTATIN [Concomitant]
     Active Substance: ATORVASTATIN
     Indication: CORONARY ARTERY DISEASE
     Dosage: DOSE PER APPLICATION AND DAILY DOSE: 40
     Route: 048
     Dates: start: 201404

REACTIONS (3)
  - Skin ulcer [Not Recovered/Not Resolved]
  - Skin ulcer haemorrhage [Recovered/Resolved with Sequelae]
  - Pneumonia [Recovered/Resolved]

NARRATIVE: CASE EVENT DATE: 20160523
